FAERS Safety Report 10502300 (Version 1)
Quarter: 2014Q4

REPORT INFORMATION
  Report Type: Spontaneous
  Country: US (occurrence: US)
  Receive Date: 20141007
  Receipt Date: 20141007
  Transmission Date: 20150528
  Serious: No
  Sender: FDA-Public Use
  Company Number: US-BAYER-2014-148393

PATIENT
  Age: 74 Year
  Sex: Female
  Weight: 78 kg

DRUGS (9)
  1. ALEVE [Suspect]
     Active Substance: NAPROXEN SODIUM
     Indication: BACK PAIN
     Dosage: 2 DF, QID, BOTTLE COUNT 100S
     Route: 048
     Dates: start: 201409
  2. METAXALONE. [Concomitant]
     Active Substance: METAXALONE
  3. VITAMIN D [Concomitant]
     Active Substance: CHOLECALCIFEROL
  4. VITAMIN B12 [Concomitant]
     Active Substance: CYANOCOBALAMIN
  5. ARTHROTEC [DICLOFENAC SODIUM] [Concomitant]
  6. ALEVE [Suspect]
     Active Substance: NAPROXEN SODIUM
     Indication: BACK PAIN
     Dosage: 2 DF, QID, BOTTLE COUNT 20S
     Route: 048
     Dates: start: 20141001
  7. CALCIUM [Concomitant]
     Active Substance: CALCIUM
  8. POTASSIUM [Concomitant]
     Active Substance: POTASSIUM
  9. HYDROCODONE [HYDROCODONE] [Concomitant]
     Active Substance: HYDROCODONE

REACTIONS (3)
  - Extra dose administered [None]
  - Off label use [None]
  - Nausea [Recovered/Resolved]

NARRATIVE: CASE EVENT DATE: 201409
